FAERS Safety Report 8127554-6 (Version None)
Quarter: 2012Q1

REPORT INFORMATION
  Report Type: 
  Country: None (occurrence: None)
  Receive Date: 20120210
  Receipt Date: 20120130
  Transmission Date: 20120608
  Serious: Yes (Hospitalization)
  Sender: FDA-Public Use
  Company Number: GR-MEDIMMUNE-MEDI-0014084

PATIENT
  Age: 28 Week
  Sex: Male
  Weight: 2 kg

DRUGS (1)
  1. SYNAGIS [Suspect]
     Dates: start: 20111101, end: 20111101

REACTIONS (2)
  - ASPIRATION [None]
  - APNOEA [None]
